FAERS Safety Report 4652442-7 (Version None)
Quarter: 2005Q2

REPORT INFORMATION
  Report Type: 
  Country: None (occurrence: None)
  Receive Date: 20050502
  Receipt Date: 20050418
  Transmission Date: 20051028
  Serious: Yes (Hospitalization)
  Sender: FDA-Public Use
  Company Number: FABR-11082

PATIENT
  Age: 43 Year
  Sex: Male
  Weight: 56 kg

DRUGS (1)
  1. FABRAZYME [Suspect]
     Indication: FABRY'S DISEASE
     Dosage: 1 MG/KG, IV
     Route: 042
     Dates: start: 20041201

REACTIONS (3)
  - CHEST PAIN [None]
  - DYSPNOEA [None]
  - MUSCLE STRAIN [None]
